FAERS Safety Report 24129290 (Version 1)
Quarter: 2024Q3

REPORT INFORMATION
  Report Type: Other
  Country: US (occurrence: US)
  Receive Date: 20240723
  Receipt Date: 20240723
  Transmission Date: 20241016
  Serious: Yes (Hospitalization, Other)
  Sender: HLS THERAPEUTICS
  Company Number: US-HLS-202400268

PATIENT
  Age: 38 Year
  Sex: Male

DRUGS (2)
  1. CLOZAPINE [Suspect]
     Active Substance: CLOZAPINE
     Indication: Schizophrenia
     Dosage: 375 MG/ DAY (IN THE MORNING, EVENING, AND BEFORE BEDTIME)
     Route: 065
  2. LITHIUM [Concomitant]
     Active Substance: LITHIUM
     Indication: White blood cell count
     Route: 065

REACTIONS (8)
  - Aggression [Recovering/Resolving]
  - Delusion [Recovering/Resolving]
  - C-reactive protein increased [Unknown]
  - Hepatic enzyme increased [Unknown]
  - Hallucination [Recovering/Resolving]
  - Salivary hypersecretion [Unknown]
  - White blood cell count decreased [Unknown]
  - Somnolence [Unknown]
